FAERS Safety Report 18614062 (Version 1)
Quarter: 2020Q4

REPORT INFORMATION
  Report Type: Spontaneous
  Country: US (occurrence: US)
  Receive Date: 20201214
  Receipt Date: 20201214
  Transmission Date: 20210114
  Serious: Yes (Other)
  Sender: FDA-Public Use
  Company Number: US-SUNOVION-2020SUN003715

PATIENT
  Age: 58 Year
  Sex: Female

DRUGS (1)
  1. APTIOM [Suspect]
     Active Substance: ESLICARBAZEPINE ACETATE
     Indication: SEIZURE
     Dosage: 800 MG, QD
     Route: 048

REACTIONS (7)
  - Neoplasm progression [Unknown]
  - Concussion [Unknown]
  - Addison^s disease [Unknown]
  - Facial bones fracture [Unknown]
  - Neoplasm [Unknown]
  - Near death experience [Unknown]
  - Upper limb fracture [Unknown]
